FAERS Safety Report 23881298 (Version 1)
Quarter: 2024Q2

REPORT INFORMATION
  Report Type: Spontaneous
  Country: US (occurrence: US)
  Receive Date: 20240521
  Receipt Date: 20240521
  Transmission Date: 20240716
  Serious: No
  Sender: FDA-Public Use
  Company Number: US-Eisai-EC-2024-164353

PATIENT
  Age: 82 Year
  Sex: Male

DRUGS (14)
  1. LEQEMBI [Suspect]
     Active Substance: LECANEMAB-IRMB
     Indication: Product used for unknown indication
     Dosage: DOSE UNKNOWN
     Route: 042
     Dates: start: 20240415
  2. LOSARTAN [Concomitant]
     Active Substance: LOSARTAN
  3. LEVOTHYROXINE [Concomitant]
     Active Substance: LEVOTHYROXINE\LEVOTHYROXINE SODIUM
  4. VITAMIN D [Concomitant]
     Active Substance: VITAMIN D NOS
  5. TAMSULOSIN [Concomitant]
     Active Substance: TAMSULOSIN
  6. ATORVASTATIN [Concomitant]
     Active Substance: ATORVASTATIN
  7. EZETIMIBE [Concomitant]
     Active Substance: EZETIMIBE
  8. DONEPEZIL [Concomitant]
     Active Substance: DONEPEZIL\DONEPEZIL HYDROCHLORIDE
  9. BUPROPION [Concomitant]
     Active Substance: BUPROPION
  10. FINASTERIDE [Concomitant]
     Active Substance: FINASTERIDE
  11. DIVALPROEX SODIUM [Concomitant]
     Active Substance: DIVALPROEX SODIUM
  12. AMLODIPINE [Concomitant]
     Active Substance: AMLODIPINE BESYLATE
  13. CITALOPRAM [Concomitant]
     Active Substance: CITALOPRAM\CITALOPRAM HYDROBROMIDE
  14. ASPIRIN [Concomitant]
     Active Substance: ASPIRIN

REACTIONS (1)
  - Balance disorder [Unknown]

NARRATIVE: CASE EVENT DATE: 20240401
